FAERS Safety Report 23551633 (Version 1)
Quarter: 2024Q1

REPORT INFORMATION
  Report Type: Spontaneous
  Country: BE (occurrence: BE)
  Receive Date: 20240222
  Receipt Date: 20240222
  Transmission Date: 20240410
  Serious: Yes (Other)
  Sender: FDA-Public Use
  Company Number: BE-ALKEM LABORATORIES LIMITED-BE-ALKEM-2024-02186

PATIENT
  Age: 80 Year
  Sex: Female

DRUGS (1)
  1. OLMESARTAN [Suspect]
     Active Substance: OLMESARTAN
     Indication: Product used for unknown indication
     Dosage: UNK
     Route: 065

REACTIONS (4)
  - Hypokalaemia [Unknown]
  - Acute kidney injury [Unknown]
  - Chronic gastritis [Unknown]
  - Sprue-like enteropathy [Unknown]
